FAERS Safety Report 5197776-5 (Version None)
Quarter: 2006Q4

REPORT INFORMATION
  Report Type: 
  Country: None (occurrence: None)
  Receive Date: 20061228
  Receipt Date: 20061211
  Transmission Date: 20070319
  Serious: Yes (Other)
  Sender: FDA-Public Use
  Company Number: 8020959

PATIENT
  Age: 1 Day
  Sex: Male

DRUGS (6)
  1. KEPPRA [Suspect]
     Indication: MYOCLONIC EPILEPSY
     Dosage: 1500 MG /D TRP
     Route: 064
     Dates: end: 20050814
  2. KEPPRA [Suspect]
     Indication: MYOCLONIC EPILEPSY
     Dosage: 1000 MG 2/D TRP
     Route: 064
     Dates: start: 20050815
  3. LAMICTAL [Suspect]
     Indication: MYOCLONIC EPILEPSY
     Dosage: 550 MG /D TRP
     Route: 064
  4. VALPROATE SODIUM [Suspect]
     Indication: EPILEPSY
     Dosage: 300 MG 2/D TRP
     Route: 064
     Dates: start: 20050805
  5. FOLIC ACID [Concomitant]
  6. PHYTOMENADIONE [Concomitant]

REACTIONS (3)
  - CLEFT PALATE [None]
  - DRUG EXPOSURE DURING PREGNANCY [None]
  - PREGNANCY [None]
